FAERS Safety Report 9519685 (Version 1)
Quarter: 2013Q3

REPORT INFORMATION
  Report Type: Spontaneous
  Country: US (occurrence: None)
  Receive Date: 20130911
  Receipt Date: 20130911
  Transmission Date: 20140515
  Serious: Yes (Hospitalization)
  Sender: FDA-Public Use
  Company Number: None

PATIENT
  Age: 63 Year
  Sex: Male
  Weight: 200 kg

DRUGS (1)
  1. CUBICIN [Suspect]
     Indication: BONE DISORDER
     Route: 042
     Dates: start: 20130827, end: 20130831

REACTIONS (2)
  - Rhabdomyolysis [None]
  - Renal failure acute [None]
